FAERS Safety Report 4919539-5 (Version None)
Quarter: 2006Q1

REPORT INFORMATION
  Report Type: 
  Country: None (occurrence: None)
  Receive Date: 20060222
  Receipt Date: 20041103
  Transmission Date: 20060701
  Serious: Yes (Other)
  Sender: FDA-Public Use
  Company Number: US-MERCK-0411USA00551

PATIENT
  Age: 61 Year
  Sex: Male
  Weight: 122 kg

DRUGS (10)
  1. VIOXX [Suspect]
     Indication: ARTHRITIS
     Route: 048
     Dates: start: 20011001, end: 20040901
  2. VIOXX [Suspect]
     Indication: PAIN
     Route: 048
     Dates: start: 20011001, end: 20040901
  3. LORTAB [Concomitant]
     Route: 065
  4. TYLENOL W/ CODEINE NO. 3 [Concomitant]
     Route: 065
  5. DARVON [Concomitant]
     Route: 065
  6. [THERAPY UNSPECIFIED] [Concomitant]
     Route: 065
  7. ASPIRIN [Concomitant]
     Route: 065
  8. AMBIEN [Concomitant]
     Route: 065
  9. LIPITOR [Concomitant]
     Route: 065
  10. EFFEXOR [Concomitant]
     Route: 065

REACTIONS (4)
  - ARTHROPATHY [None]
  - CEREBROVASCULAR ACCIDENT [None]
  - HYPOKALAEMIA [None]
  - TRANSIENT ISCHAEMIC ATTACK [None]
